FAERS Safety Report 15073811 (Version 1)
Quarter: 2018Q2

REPORT INFORMATION
  Report Type: Spontaneous
  Country: DE (occurrence: DE)
  Receive Date: 20180627
  Receipt Date: 20180627
  Transmission Date: 20180711
  Serious: Yes (Other)
  Sender: FDA-Public Use
  Company Number: DE-TEVA-2018-DE-912932

PATIENT
  Age: 47 Year
  Sex: Female

DRUGS (2)
  1. VALPROAT ABZ 300 MG RETARDTABLETTEN [Suspect]
     Active Substance: VALPROATE SODIUM
     Indication: MIGRAINE PROPHYLAXIS
     Dosage: 600 MILLIGRAM DAILY; (1-0-1)
     Dates: start: 201801
  2. TOPIRAMAT [Concomitant]
     Active Substance: TOPIRAMATE
     Indication: MIGRAINE PROPHYLAXIS
     Dates: start: 201804

REACTIONS (4)
  - Alopecia [Not Recovered/Not Resolved]
  - Tremor [Unknown]
  - Arrhythmia [Not Recovered/Not Resolved]
  - Weight increased [Unknown]

NARRATIVE: CASE EVENT DATE: 201801
